FAERS Safety Report 7458009-X (Version None)
Quarter: 2011Q1

REPORT INFORMATION
  Report Type: 
  Country: None (occurrence: None)
  Receive Date: 20110303
  Receipt Date: 20110303
  Transmission Date: 20110831
  Serious: No
  Sender: FDA-Public Use
  Company Number: None

PATIENT
  Age: 24 Year
  Sex: Female
  Weight: 43.0917 kg

DRUGS (1)
  1. LEVAQUIN [Suspect]
     Indication: BRONCHITIS
     Dosage: IV INFUSION IV DRIP
     Route: 041
     Dates: start: 20101204, end: 20101204

REACTIONS (9)
  - NEUROPATHY PERIPHERAL [None]
  - HEART RATE INCREASED [None]
  - ANXIETY [None]
  - IMPAIRED WORK ABILITY [None]
  - INSOMNIA [None]
  - NIGHTMARE [None]
  - PAIN [None]
  - HEART RATE IRREGULAR [None]
  - INFUSION RELATED REACTION [None]
